FAERS Safety Report 18444913 (Version 1)
Quarter: 2020Q4

REPORT INFORMATION
  Report Type: Spontaneous
  Country: IT (occurrence: IT)
  Receive Date: 20201030
  Receipt Date: 20201030
  Transmission Date: 20210114
  Serious: Yes (Hospitalization)
  Sender: FDA-Public Use
  Company Number: IT-HIKMA PHARMACEUTICALS USA INC.-IT-H14001-20-52396

PATIENT
  Age: 75 Year
  Sex: Male
  Weight: 61 kg

DRUGS (2)
  1. IODINE. [Concomitant]
     Active Substance: IODINE
     Indication: COMPUTERISED TOMOGRAM
     Dosage: UNKNOWN
     Route: 040
     Dates: start: 20200922, end: 20200922
  2. VANCOMYCIN [Suspect]
     Active Substance: VANCOMYCIN
     Indication: PNEUMONITIS
     Route: 041
     Dates: start: 20200925, end: 20200930

REACTIONS (1)
  - Blood creatinine increased [Recovering/Resolving]

NARRATIVE: CASE EVENT DATE: 20200928
